FAERS Safety Report 6600460-1 (Version None)
Quarter: 2010Q1

REPORT INFORMATION
  Report Type: 
  Country: None (occurrence: None)
  Receive Date: 20100223
  Receipt Date: 20100223
  Transmission Date: 20100710
  Serious: Yes (Other)
  Sender: FDA-Public Use
  Company Number: None

PATIENT
  Age: 34 Year
  Sex: Female
  Weight: 52.1637 kg

DRUGS (2)
  1. SKELAXIN [Suspect]
     Indication: MUSCLE SPASMS
     Dosage: 1 TABLET QID PRN PO
     Route: 048
     Dates: start: 20091204, end: 20091227
  2. MACROBID [Suspect]
     Indication: CYSTITIS
     Dosage: 1 CAPSULE PRN PO
     Route: 048
     Dates: start: 20090901, end: 20091227

REACTIONS (2)
  - DRUG HYPERSENSITIVITY [None]
  - ERYTHEMA MULTIFORME [None]
